FAERS Safety Report 15164205 (Version 4)
Quarter: 2018Q4

REPORT INFORMATION
  Report Type: Report from Study
  Country: None (occurrence: CO)
  Receive Date: 20180719
  Receipt Date: 20181012
  Transmission Date: 20190204
  Serious: Yes (Hospitalization, Other)
  Sender: FDA-Public Use
  Company Number: CO-ABBVIE-18K-036-2422424-00

PATIENT
  Age: 82 Year
  Sex: Female
  Weight: 50 kg

DRUGS (1)
  1. HUMIRA [Suspect]
     Active Substance: ADALIMUMAB
     Indication: RHEUMATOID ARTHRITIS
     Route: 058
     Dates: start: 20121220, end: 20180502

REACTIONS (10)
  - Weight decreased [Recovering/Resolving]
  - Post procedural complication [Recovering/Resolving]
  - Bile output increased [Recovering/Resolving]
  - Headache [Recovering/Resolving]
  - Flatulence [Recovering/Resolving]
  - Nephrolithiasis [Recovering/Resolving]
  - Hepatitis A [Recovering/Resolving]
  - Venous occlusion [Unknown]
  - Diarrhoea [Recovering/Resolving]
  - Cholelithiasis obstructive [Recovering/Resolving]

NARRATIVE: CASE EVENT DATE: 20180625
